FAERS Safety Report 7201056-3 (Version None)
Quarter: 2010Q4

REPORT INFORMATION
  Report Type: 
  Country: None (occurrence: None)
  Receive Date: 20101214
  Receipt Date: 20101130
  Transmission Date: 20110411
  Serious: Yes (Hospitalization)
  Sender: FDA-Public Use
  Company Number: DSU-2010-06607

PATIENT
  Sex: Female
  Weight: 60.782 kg

DRUGS (9)
  1. AZOR [Suspect]
     Indication: HYPERTENSION
     Dosage: PER ORAL
     Route: 048
     Dates: end: 20100101
  2. BENICAR [Suspect]
     Indication: HYPERTENSION
     Dosage: PER ORAL
     Route: 048
  3. TRIBENZOR [Suspect]
     Indication: HYPERTENSION
     Dosage: 40/10/25 MILLIGRAMS (QD), PER ORAL
     Route: 048
     Dates: start: 20101102
  4. FLU SHOT (INFLUENZA VIRUS VACCINE POLYVALENT) (INJECTION)(INFLUENZA VI [Suspect]
     Indication: INFLUENZA IMMUNISATION
     Dosage: 1 DOSAGE FORMS (1 DOSAGE FORMS), INTRAMUSCULAR
     Route: 030
     Dates: start: 20101116, end: 20101116
  5. PLAVIX (CLOPIDOGREL)(75 MILLIGRAM)(CLOPIDOGREL) [Concomitant]
  6. BYSTOLIC (NEBIVOLOL HYDROCHLORIDE) (10 MILLIGRAM) (NEBIVOLOL HYDROCHLO [Concomitant]
  7. NATEGLINIDE (NATEGLINIDE) (120 MILLIGRAM) (NATEGLINIDE) [Concomitant]
  8. FAMOTIDINE (FAMOTIDINE)(20 MILLIGRAM)(FAMOTIDINE) [Concomitant]
  9. SIMVASTATIN (SIMVASTATIN)(20 MILLIGRAM)(SIMVASTATIN) [Concomitant]

REACTIONS (4)
  - ARTERIAL OCCLUSIVE DISEASE [None]
  - BLOOD GLUCOSE INCREASED [None]
  - COUGH [None]
  - OEDEMA PERIPHERAL [None]
